FAERS Safety Report 12455767 (Version 1)
Quarter: 2016Q2

REPORT INFORMATION
  Report Type: Report from Study
  Country: US (occurrence: US)
  Receive Date: 20160610
  Receipt Date: 20160610
  Transmission Date: 20160815
  Serious: Yes (Hospitalization, Other)
  Sender: FDA-Public Use
  Company Number: US-GILEAD-2016-0218061

PATIENT
  Age: 67 Year
  Sex: Female

DRUGS (27)
  1. AMBRISENTAN [Suspect]
     Active Substance: AMBRISENTAN
     Indication: PULMONARY HYPERTENSION
     Dosage: 10 MG, QD
     Route: 065
     Dates: start: 201301
  2. METOPROL XL [Concomitant]
  3. ROPINIROLE. [Concomitant]
     Active Substance: ROPINIROLE
  4. CALCIUM CARBASPIRIN [Concomitant]
  5. LEVOCETIRIZIN [Concomitant]
     Active Substance: LEVOCETIRIZINE DIHYDROCHLORIDE
  6. CELEXA [Concomitant]
     Active Substance: CITALOPRAM HYDROBROMIDE
  7. AMIODARONE [Concomitant]
     Active Substance: AMIODARONE
  8. PROAIR HFA [Concomitant]
     Active Substance: ALBUTEROL SULFATE
  9. SYMBICORT [Concomitant]
     Active Substance: BUDESONIDE\FORMOTEROL FUMARATE DIHYDRATE
  10. SEROQUEL [Concomitant]
     Active Substance: QUETIAPINE FUMARATE
  11. PERCOCET                           /00446701/ [Concomitant]
     Active Substance: ACETAMINOPHEN\OXYCODONE HYDROCHLORIDE\OXYCODONE TEREPHTHALATE
  12. PROGESTERONE. [Concomitant]
     Active Substance: PROGESTERONE
  13. AMITIZA [Concomitant]
     Active Substance: LUBIPROSTONE
  14. ARMOUR THYROID [Concomitant]
     Active Substance: THYROID, PORCINE
  15. STOOL SOFTENER [Concomitant]
     Active Substance: DOCUSATE CALCIUM
  16. KLONOPIN [Concomitant]
     Active Substance: CLONAZEPAM
  17. VITAMIN B [Concomitant]
     Active Substance: VITAMIN B
  18. MONTELUKAST [Concomitant]
     Active Substance: MONTELUKAST SODIUM
  19. PANTOPRAZOLE [Concomitant]
     Active Substance: PANTOPRAZOLE SODIUM
  20. METFORMIN [Concomitant]
     Active Substance: METFORMIN HYDROCHLORIDE
  21. VITAMIN D [Concomitant]
     Active Substance: CHOLECALCIFEROL
  22. DIGOXIN. [Concomitant]
     Active Substance: DIGOXIN
  23. FUROSEMIDE. [Concomitant]
     Active Substance: FUROSEMIDE
  24. ADCIRCA [Suspect]
     Active Substance: TADALAFIL
     Indication: PULMONARY HYPERTENSION
     Dosage: 40 MG, QD
     Dates: start: 201301
  25. SPIRONOLACTON [Concomitant]
     Active Substance: SPIRONOLACTONE
  26. FENOFIBRATE. [Concomitant]
     Active Substance: FENOFIBRATE
  27. COUMADIN [Concomitant]
     Active Substance: WARFARIN SODIUM

REACTIONS (2)
  - Shoulder operation [Recovering/Resolving]
  - Drug dose omission [Unknown]

NARRATIVE: CASE EVENT DATE: 20160531
